FAERS Safety Report 8060374-X (Version None)
Quarter: 2012Q1

REPORT INFORMATION
  Report Type: 
  Country: None (occurrence: None)
  Receive Date: 20120119
  Receipt Date: 20120119
  Transmission Date: 20120608
  Serious: Yes (Hospitalization)
  Sender: FDA-Public Use
  Company Number: None

PATIENT
  Age: 70 Year
  Sex: Male
  Weight: 80.4 kg

DRUGS (10)
  1. MECLIZINE [Concomitant]
  2. NITROGLYCERIN [Concomitant]
  3. M.V.I. [Concomitant]
  4. ASPIRIN [Suspect]
     Indication: CORONARY ARTERY DISEASE
     Dosage: 325MG DAILY PO RECENT
     Route: 048
  5. ASPIRIN [Suspect]
     Indication: ACUTE MYOCARDIAL INFARCTION
     Dosage: 325MG DAILY PO RECENT
     Route: 048
  6. FERROUS SULFATE TAB [Concomitant]
  7. ISOSORBIDE MONONITRATE [Concomitant]
  8. LISINOPRIL [Concomitant]
  9. METOPROLOL [Concomitant]
  10. LIPITOR [Concomitant]

REACTIONS (4)
  - LOWER GASTROINTESTINAL HAEMORRHAGE [None]
  - DIVERTICULUM INTESTINAL HAEMORRHAGIC [None]
  - GASTRITIS [None]
  - GASTRIC ULCER [None]
